FAERS Safety Report 19523135 (Version 1)
Quarter: 2021Q3

REPORT INFORMATION
  Report Type: Spontaneous
  Country: FR (occurrence: FR)
  Receive Date: 20210713
  Receipt Date: 20210713
  Transmission Date: 20211014
  Serious: Yes (Other)
  Sender: FDA-Public Use
  Company Number: FR-AMGEN-FRASP2021106101

PATIENT
  Age: 68 Year
  Sex: Male

DRUGS (1)
  1. ENBREL [Suspect]
     Active Substance: ETANERCEPT
     Indication: SPONDYLITIS
     Dosage: UNK
     Route: 065
     Dates: start: 2014

REACTIONS (3)
  - Pulmonary embolism [Unknown]
  - Peripheral swelling [Unknown]
  - Phlebitis [Recovering/Resolving]

NARRATIVE: CASE EVENT DATE: 202010
